FAERS Safety Report 15232256 (Version 1)
Quarter: 2018Q3

REPORT INFORMATION
  Report Type: Spontaneous
  Country: US (occurrence: US)
  Receive Date: 20180709
  Receipt Date: 20180709
  Transmission Date: 20181010
  Serious: Yes (Life-Threatening, Hospitalization)
  Sender: FDA-Public Use
  Company Number: None

PATIENT
  Age: 65 Year
  Sex: Female
  Weight: 81.9 kg

DRUGS (10)
  1. ACETAMINOPHEN 325 MG [Concomitant]
     Active Substance: ACETAMINOPHEN
  2. OMEPRAZOLE 40 MG [Concomitant]
     Active Substance: OMEPRAZOLE
  3. XARELTO [Concomitant]
     Active Substance: RIVAROXABAN
  4. UBIQUINONE 100 MG [Concomitant]
  5. CALCIUM CARBONATE 500 MG [Concomitant]
     Active Substance: CALCIUM CARBONATE
  6. CHOLECALCIFEROL 50,000 IU [Concomitant]
  7. CYANOCOBALAMIN. [Concomitant]
     Active Substance: CYANOCOBALAMIN
  8. LIVALO 4 MG [Concomitant]
  9. LEVOTHYROXINE. [Concomitant]
     Active Substance: LEVOTHYROXINE
  10. TIKOSYN [Suspect]
     Active Substance: DOFETILIDE
     Indication: ATRIAL FIBRILLATION
     Route: 048
     Dates: start: 20170504, end: 20180707

REACTIONS (2)
  - Cardioversion [None]
  - Shock [None]

NARRATIVE: CASE EVENT DATE: 20180707
